FAERS Safety Report 6410086-0 (Version None)
Quarter: 2009Q4

REPORT INFORMATION
  Report Type: 
  Country: None (occurrence: None)
  Receive Date: 20091022
  Receipt Date: 20091014
  Transmission Date: 20100525
  Serious: Yes (Hospitalization)
  Sender: FDA-Public Use
  Company Number: BR-ASTRAZENECA-2009SE20712

PATIENT
  Age: 59 Year
  Sex: Female
  Weight: 47 kg

DRUGS (8)
  1. SEROQUEL [Suspect]
     Indication: BIPOLAR I DISORDER
     Route: 048
     Dates: start: 20070101, end: 20090401
  2. SEROQUEL [Suspect]
     Route: 048
     Dates: start: 20090401
  3. SYNTHROID [Concomitant]
     Indication: HYPOTHYROIDISM
     Route: 048
     Dates: start: 19990101
  4. SOY ISOFLAVONE [Concomitant]
     Indication: HORMONE THERAPY
     Route: 048
     Dates: start: 19610101
  5. CALTRAT D [Concomitant]
     Indication: PROPHYLAXIS
     Dosage: DAILY/ALTERNATE DAYS
     Route: 048
     Dates: start: 20080101
  6. BALCOR [Concomitant]
     Indication: ARTERIAL SPASM
     Dates: start: 20071101
  7. BUPROPION HCL [Concomitant]
     Dates: start: 20090801
  8. FLUOXETINE [Concomitant]
     Dates: start: 20090801

REACTIONS (4)
  - ACUTE MYOCARDIAL INFARCTION [None]
  - DEPRESSION [None]
  - DIVERTICULITIS [None]
  - WEIGHT DECREASED [None]
